FAERS Safety Report 4809803-2 (Version None)
Quarter: 2005Q4

REPORT INFORMATION
  Report Type: 
  Country: None (occurrence: None)
  Receive Date: 20051024
  Receipt Date: 20051011
  Transmission Date: 20060501
  Serious: Yes (Hospitalization)
  Sender: FDA-Public Use
  Company Number: 218068

PATIENT
  Age: 63 Year
  Sex: Female
  Weight: 79.4 kg

DRUGS (1)
  1. RAPTIVA [Suspect]
     Indication: PSORIASIS
     Dosage: 0.6 ML, 1/WEEK, UNK
     Route: 065
     Dates: start: 20050918

REACTIONS (6)
  - ARTHRALGIA [None]
  - CHILLS [None]
  - DYSPNOEA [None]
  - HEADACHE [None]
  - NAUSEA [None]
  - PYREXIA [None]
